FAERS Safety Report 9626329 (Version 1)
Quarter: 2013Q4

REPORT INFORMATION
  Report Type: Spontaneous
  Country: GB (occurrence: GB)
  Receive Date: 20131016
  Receipt Date: 20131016
  Transmission Date: 20140711
  Serious: Yes (Hospitalization)
  Sender: FDA-Public Use
  Company Number: GB-JNJFOC-20131005442

PATIENT
  Sex: Male

DRUGS (1)
  1. DUROGESIC DTRANS [Suspect]
     Indication: PAIN
     Route: 062

REACTIONS (4)
  - Hospitalisation [Unknown]
  - Wrong technique in drug usage process [Unknown]
  - Drug administration error [Unknown]
  - Incorrect dose administered [Unknown]
